FAERS Safety Report 5748523-7 (Version None)
Quarter: 2008Q2

REPORT INFORMATION
  Report Type: 
  Country: None (occurrence: None)
  Receive Date: 20080523
  Receipt Date: 20080512
  Transmission Date: 20081010
  Serious: Yes (Other)
  Sender: FDA-Public Use
  Company Number: US-PFIZER INC-2008041932

PATIENT
  Sex: Female
  Weight: 81.6 kg

DRUGS (3)
  1. DILANTIN [Suspect]
     Indication: CONVULSION
  2. DILANTIN [Suspect]
     Dosage: TEXT:100 MG
  3. ASPIRIN [Concomitant]

REACTIONS (10)
  - ANTICONVULSANT DRUG LEVEL DECREASED [None]
  - ARTHRITIS [None]
  - CONVULSION [None]
  - DIZZINESS [None]
  - FEELING ABNORMAL [None]
  - HYPOAESTHESIA [None]
  - INCORRECT DOSE ADMINISTERED [None]
  - MIGRAINE [None]
  - NAUSEA [None]
  - VOMITING [None]
